FAERS Safety Report 4404751-4 (Version None)
Quarter: 2004Q3

REPORT INFORMATION
  Report Type: 
  Country: None (occurrence: None)
  Receive Date: 20040720
  Receipt Date: 20040707
  Transmission Date: 20050211
  Serious: Yes (Life-Threatening, Hospitalization)
  Sender: FDA-Public Use
  Company Number: JP-2004-026535

PATIENT
  Age: 45 Year
  Sex: Male
  Weight: 70 kg

DRUGS (9)
  1. FLUDARA [Suspect]
     Indication: CHRONIC LYMPHOCYTIC LEUKAEMIA
     Dosage: 45 MG, 1X/DAY, IV DRIP
     Route: 041
     Dates: start: 20040415, end: 20040417
  2. RITUXAN [Suspect]
     Indication: CHRONIC LYMPHOCYTIC LEUKAEMIA
     Dosage: 700 MG, 1X/DAY, IV DRIP
     Route: 041
     Dates: start: 20040414, end: 20040414
  3. CYCLOPHOSPHAMIDE [Suspect]
     Indication: CHRONIC LYMPHOCYTIC LEUKAEMIA
     Dosage: 450 MG, 1X/DAY, IV DRIP
     Route: 041
     Dates: start: 20040415, end: 20040417
  4. ALLOPURINOL [Suspect]
     Indication: PROPHYLAXIS
     Dosage: 100 MG, 3X/DAY, ORAL
     Route: 048
     Dates: start: 20040312, end: 20040508
  5. ALLOPURINOL [Suspect]
     Indication: TUMOUR LYSIS SYNDROME
     Dosage: 100 MG, 3X/DAY, ORAL
     Route: 048
     Dates: start: 20040312, end: 20040508
  6. GASTER D (FAMOTIDINE) TABLET [Concomitant]
  7. OZEX (TOSUFLOXACIN TOSILATE) [Concomitant]
  8. DIFLUCAN (FLUCONAZOLE) CAPSULE [Concomitant]
  9. BAKTAR TABLET [Concomitant]

REACTIONS (10)
  - AGRANULOCYTOSIS [None]
  - DRUG HYPERSENSITIVITY [None]
  - ERYTHEMA MULTIFORME [None]
  - IMMUNODEFICIENCY [None]
  - INFECTION [None]
  - INTERSTITIAL LUNG DISEASE [None]
  - PLEURAL EFFUSION [None]
  - PNEUMONIA [None]
  - PNEUMOTHORAX [None]
  - RESPIRATORY FAILURE [None]
